FAERS Safety Report 15020628 (Version 4)
Quarter: 2019Q1

REPORT INFORMATION
  Report Type: Report from Study
  Country: JP (occurrence: JP)
  Receive Date: 20180618
  Receipt Date: 20190329
  Transmission Date: 20190417
  Serious: Yes (Death)
  Sender: FDA-Public Use
  Company Number: JP-BEH-2018091819

PATIENT
  Age: 82 Year
  Sex: Male
  Weight: 65 kg

DRUGS (4)
  1. KAYTWO N [Concomitant]
     Active Substance: MENATETRENONE
     Indication: PROCOAGULANT THERAPY
     Dosage: 20 MG, QD
     Route: 042
     Dates: start: 20180131, end: 20180131
  2. BERIPLEX P/N [Suspect]
     Active Substance: COAGULATION FACTOR IX HUMAN\COAGULATION FACTOR VII HUMAN\COAGULATION FACTOR X HUMAN\PROTEIN C\PROTEIN S HUMAN\PROTHROMBIN
     Indication: SHOCK HAEMORRHAGIC
  3. BERIPLEX P/N [Suspect]
     Active Substance: COAGULATION FACTOR IX HUMAN\COAGULATION FACTOR VII HUMAN\COAGULATION FACTOR X HUMAN\PROTEIN C\PROTEIN S HUMAN\PROTHROMBIN
     Indication: HAEMORRHAGE
     Dosage: 2000 IU, TOT
     Route: 042
     Dates: start: 20180131
  4. WARFARIN [Concomitant]
     Active Substance: WARFARIN
     Indication: ATRIAL FIBRILLATION
     Route: 048

REACTIONS (2)
  - Shock [Fatal]
  - Peripheral circulatory failure [Fatal]

NARRATIVE: CASE EVENT DATE: 20180131
